FAERS Safety Report 10594953 (Version 2)
Quarter: 2014Q4

REPORT INFORMATION
  Report Type: Report from Study
  Country: US (occurrence: US)
  Receive Date: 20141120
  Receipt Date: 20141205
  Transmission Date: 20150529
  Serious: Yes (Hospitalization, Other)
  Sender: FDA-Public Use
  Company Number: US-BIOGENIDEC-2014BI120627

PATIENT
  Sex: Female

DRUGS (1)
  1. TYSABRI [Suspect]
     Active Substance: NATALIZUMAB
     Indication: MULTIPLE SCLEROSIS
     Route: 042
     Dates: start: 20130109

REACTIONS (13)
  - Malaise [Unknown]
  - Central nervous system lesion [Unknown]
  - Fall [Recovered/Resolved]
  - Shock [Not Recovered/Not Resolved]
  - Loss of consciousness [Unknown]
  - Stress [Unknown]
  - General physical health deterioration [Unknown]
  - Sudden onset of sleep [Unknown]
  - Joint injury [Unknown]
  - Bone neoplasm [Unknown]
  - Paraesthesia [Unknown]
  - Infusion site bruising [Unknown]
  - Dizziness [Unknown]
